FAERS Safety Report 15793727 (Version 1)
Quarter: 2019Q1

REPORT INFORMATION
  Report Type: Spontaneous
  Country: US (occurrence: US)
  Receive Date: 20190105
  Receipt Date: 20190105
  Transmission Date: 20190417
  Serious: Yes (Other)
  Sender: FDA-Public Use
  Company Number: None

PATIENT
  Age: 28 Year
  Sex: Female
  Weight: 56.7 kg

DRUGS (1)
  1. TAYTULLA [Suspect]
     Active Substance: ETHINYL ESTRADIOL\NORETHINDRONE ACETATE
     Indication: OVULATION PAIN
     Route: 048
     Dates: start: 20181025, end: 20190103

REACTIONS (3)
  - Anxiety [None]
  - Panic attack [None]
  - Negative thoughts [None]

NARRATIVE: CASE EVENT DATE: 20181206
